FAERS Safety Report 11861999 (Version 1)
Quarter: 2015Q4

REPORT INFORMATION
  Report Type: Spontaneous
  Country: US (occurrence: US)
  Receive Date: 20151222
  Receipt Date: 20151222
  Transmission Date: 20160305
  Serious: No
  Sender: FDA-Public Use
  Company Number: US-ROCHE-1085074

PATIENT
  Sex: Male

DRUGS (10)
  1. COPEGUS [Suspect]
     Active Substance: RIBAVIRIN
     Indication: CHRONIC HEPATITIS C
     Dosage: IN DIVIDED DOSES
     Route: 048
     Dates: start: 20120622
  2. COPEGUS [Suspect]
     Active Substance: RIBAVIRIN
     Dosage: IN DIVIDED DOSES
     Route: 048
  3. NITROGLYCERINE OINTMENT [Concomitant]
  4. SITZ BATH [Concomitant]
  5. PEGASYS [Suspect]
     Active Substance: PEGINTERFERON ALFA-2A
     Indication: CHRONIC HEPATITIS C
     Route: 058
     Dates: start: 20120622
  6. DESITIN OINTMENT [Concomitant]
  7. INCIVEK [Suspect]
     Active Substance: TELAPREVIR
     Indication: CHRONIC HEPATITIS C
     Route: 065
     Dates: start: 20120622, end: 20120709
  8. COPEGUS [Suspect]
     Active Substance: RIBAVIRIN
     Dosage: IN DIVIDED DOSES
     Route: 048
  9. HEMORRHOID CREAM UNKNOWN NAME [Concomitant]
  10. TUCKS CREAM [Concomitant]

REACTIONS (11)
  - Mental impairment [Unknown]
  - Lip haemorrhage [Unknown]
  - Fatigue [Unknown]
  - Injection site reaction [Unknown]
  - Pruritus [Unknown]
  - Rash [Unknown]
  - Injection site irritation [Unknown]
  - Wrong technique in product usage process [Unknown]
  - Anorectal discomfort [Unknown]
  - Red blood cell count decreased [Unknown]
  - Injection site extravasation [Unknown]
